FAERS Safety Report 19157626 (Version 1)
Quarter: 2021Q2

REPORT INFORMATION
  Report Type: Spontaneous
  Country: RS (occurrence: RS)
  Receive Date: 20210420
  Receipt Date: 20210420
  Transmission Date: 20210717
  Serious: Yes (Life-Threatening, Hospitalization)
  Sender: FDA-Public Use
  Company Number: RS-TEVA-2021-RS-1901533

PATIENT
  Age: 72 Year
  Sex: Male

DRUGS (10)
  1. SINTOPOZID [Suspect]
     Active Substance: ETOPOSIDE
     Indication: LUNG NEOPLASM
     Route: 042
     Dates: start: 20210209, end: 20210211
  2. AMIODARON [Concomitant]
     Active Substance: AMIODARONE
     Dosage: CHRONIC THERAPY
     Route: 048
  3. FRAXIPARIN [Concomitant]
     Active Substance: NADROPARIN CALCIUM
     Dosage: DOSAGE: 0.6 ? 1 X PER DAY
     Route: 058
     Dates: start: 20210209, end: 20210219
  4. AKYNZEO [Concomitant]
     Active Substance: NETUPITANT\PALONOSETRON HYDROCHLORIDE
  5. CISPLATIN EBEWE [Suspect]
     Active Substance: CISPLATIN
     Indication: LUNG NEOPLASM MALIGNANT
     Dosage: DOSAGE: PE PROTOCOL
     Route: 042
     Dates: start: 20210209, end: 20210209
  6. TRIMETACOR [Concomitant]
     Dosage: CHRONIC THERAPY
     Route: 048
  7. REMIRTA [Concomitant]
     Active Substance: MIRTAZAPINE
     Dosage: CHRONIC THERAPY
     Route: 048
  8. TAMSOL [Concomitant]
     Dosage: CHRONIC THERAPY
     Route: 048
  9. CONTROLOC [Concomitant]
     Active Substance: PANTOPRAZOLE SODIUM
     Dosage: SUSPECTED INGREDIENT: STABILIZER
  10. ONDASAN [Concomitant]
     Active Substance: ONDANSETRON HYDROCHLORIDE

REACTIONS (1)
  - Pancytopenia [Recovering/Resolving]

NARRATIVE: CASE EVENT DATE: 20210220
